FAERS Safety Report 19260123 (Version 2)
Quarter: 2023Q2

REPORT INFORMATION
  Report Type: Report from Study
  Country: US (occurrence: US)
  Receive Date: 20210514
  Receipt Date: 20230518
  Transmission Date: 20230721
  Serious: Yes (Other)
  Sender: FDA-Public Use
  Company Number: US-JAZZ-2020-US-013345

PATIENT
  Sex: Female

DRUGS (15)
  1. XYREM [Suspect]
     Active Substance: SODIUM OXYBATE
     Indication: Narcolepsy
     Dosage: 2.25 GRAM, BID
     Route: 048
     Dates: start: 201907, end: 201907
  2. XYREM [Suspect]
     Active Substance: SODIUM OXYBATE
     Dosage: DOSE ADJUSTMENTS
     Route: 048
     Dates: start: 201907, end: 201910
  3. XYREM [Suspect]
     Active Substance: SODIUM OXYBATE
     Dosage: 4.5 GRAM, BID
     Route: 048
     Dates: start: 201910, end: 202009
  4. WAKIX [Suspect]
     Active Substance: PITOLISANT HYDROCHLORIDE
     Indication: Product used for unknown indication
     Dosage: UNKNOWN DOSE
  5. CLONAZEPAM [Concomitant]
     Active Substance: CLONAZEPAM
  6. GABAPENTIN [Concomitant]
     Active Substance: GABAPENTIN
  7. VYVANSE [Concomitant]
     Active Substance: LISDEXAMFETAMINE DIMESYLATE
  8. FLUOXETINE HYDROCHLORIDE [Concomitant]
     Active Substance: FLUOXETINE HYDROCHLORIDE
     Dosage: UNK
  9. ORTHO TRI CYCLEN LO [Concomitant]
     Active Substance: ETHINYL ESTRADIOL\NORGESTIMATE
  10. ARMODAFINIL [Concomitant]
     Active Substance: ARMODAFINIL
  11. CORTISONE [Concomitant]
     Active Substance: CORTISONE
  12. IBUPROFEN [Concomitant]
     Active Substance: IBUPROFEN
  13. THERAGRAN-M [MINERALS NOS;VITAMINS NOS] [Concomitant]
  14. LISINOPRIL [Concomitant]
     Active Substance: LISINOPRIL
  15. PROZAC [Concomitant]
     Active Substance: FLUOXETINE HYDROCHLORIDE

REACTIONS (8)
  - Weight decreased [Recovered/Resolved]
  - COVID-19 [Unknown]
  - Fluid retention [Not Recovered/Not Resolved]
  - Blood pressure increased [Recovering/Resolving]
  - Anxiety [Unknown]
  - Headache [Recovering/Resolving]
  - Increased appetite [Recovering/Resolving]
  - Weight increased [Recovering/Resolving]

NARRATIVE: CASE EVENT DATE: 20200101
